FAERS Safety Report 7249367-X (Version None)
Quarter: 2011Q1

REPORT INFORMATION
  Report Type: 
  Country: None (occurrence: None)
  Receive Date: 20110128
  Receipt Date: 20101213
  Transmission Date: 20110831
  Serious: Yes (Life-Threatening, Other)
  Sender: FDA-Public Use
  Company Number: US-BAYER-2010-004947

PATIENT
  Sex: Female

DRUGS (1)
  1. AVELOX [Suspect]
     Indication: PHARYNGITIS STREPTOCOCCAL
     Dosage: DAILY DOSE 400 MG
     Route: 048

REACTIONS (5)
  - DYSPNOEA [None]
  - EAR PRURITUS [None]
  - PRURITUS GENERALISED [None]
  - HYPERSENSITIVITY [None]
  - ADVERSE REACTION [None]
